FAERS Safety Report 4581307-4 (Version None)
Quarter: 2005Q1

REPORT INFORMATION
  Report Type: 
  Country: None (occurrence: None)
  Receive Date: 20050214
  Receipt Date: 20040923
  Transmission Date: 20050727
  Serious: Yes (Other)
  Sender: FDA-Public Use
  Company Number: US-GLAXOSMITHKLINE-A0527129A

PATIENT
  Age: 31 Year
  Sex: Female
  Weight: 50 kg

DRUGS (2)
  1. LAMICTAL [Suspect]
     Indication: BIPOLAR DISORDER
     Dosage: 25MG PER DAY
     Route: 048
     Dates: start: 20040901
  2. KLONOPIN [Concomitant]
     Dosage: .5MG TWICE PER DAY

REACTIONS (6)
  - HYPERSENSITIVITY [None]
  - LYMPHADENOPATHY [None]
  - ODYNOPHAGIA [None]
  - PRURITUS [None]
  - RASH [None]
  - THROAT TIGHTNESS [None]
